FAERS Safety Report 16075773 (Version 1)
Quarter: 2019Q1

REPORT INFORMATION
  Report Type: Spontaneous
  Country: GB (occurrence: GB)
  Receive Date: 20190315
  Receipt Date: 20190315
  Transmission Date: 20190418
  Serious: Yes (Other)
  Sender: FDA-Public Use
  Company Number: GB-TEVA-2019-GB-1025585

PATIENT
  Sex: Female

DRUGS (1)
  1. COPAXONE [Suspect]
     Active Substance: GLATIRAMER ACETATE
     Indication: PRODUCT USED FOR UNKNOWN INDICATION
     Route: 058
     Dates: start: 20190117

REACTIONS (14)
  - Rhinorrhoea [Unknown]
  - Injection site mass [Unknown]
  - Vomiting [Unknown]
  - Hyperhidrosis [Unknown]
  - Muscle rigidity [Unknown]
  - Dyskinesia [Unknown]
  - Dyspnoea [Unknown]
  - Chills [Unknown]
  - Incoherent [Unknown]
  - Back pain [Unknown]
  - Adverse drug reaction [Unknown]
  - Dysstasia [Unknown]
  - Seizure [Unknown]
  - Erythema [Unknown]

NARRATIVE: CASE EVENT DATE: 20190117
